FAERS Safety Report 7082489 (Version 2)
Quarter: 2012Q4

REPORT INFORMATION
  Report Type: Report from Study
  Country: KP (occurrence: KR)
  Receive Date: 20090814
  Receipt Date: 20120918
  Transmission Date: 20130627
  Serious: Yes (Hospitalization)
  Sender: FDA-Public Use
  Company Number: PHHY2009KR31478

PATIENT
  Sex: Male
  Weight: 70 kg

DRUGS (3)
  1. ACLASTA/ZOLEDRONATE [Suspect]
     Indication: OSTEONECROSIS
     Dosage: 5 mg yearly
     Route: 042
     Dates: start: 20090423
  2. CALCIUM [Concomitant]
     Dosage: UNK UKN, UNK
  3. VITAMIN D [Concomitant]
     Dosage: UNK UKN, UNK

REACTIONS (3)
  - Osteonecrosis [Unknown]
  - Disease progression [Unknown]
  - Drug ineffective [Unknown]
